FAERS Safety Report 24563622 (Version 2)
Quarter: 2025Q1

REPORT INFORMATION
  Report Type: Report from Study
  Country: US (occurrence: US)
  Receive Date: 20241030
  Receipt Date: 20250312
  Transmission Date: 20250409
  Serious: Yes (Hospitalization, Other)
  Sender: INSMED
  Company Number: US-INSMED, INC.-2024-02142-US

PATIENT
  Sex: Male

DRUGS (7)
  1. ARIKAYCE [Suspect]
     Active Substance: AMIKACIN
     Indication: Mycobacterium avium complex infection
     Dosage: 590 MILLIGRAM, QD
     Route: 055
     Dates: start: 20240520, end: 20241013
  2. ARIKAYCE [Suspect]
     Active Substance: AMIKACIN
     Dosage: 590 MILLIGRAM, QD
     Route: 055
     Dates: start: 20241021
  3. ALBUTEROL [Concomitant]
     Active Substance: ALBUTEROL
     Indication: Product used for unknown indication
     Route: 065
  4. WARFARIN [Concomitant]
     Active Substance: WARFARIN
     Indication: Product used for unknown indication
     Route: 065
  5. SODIUM CHLORIDE [Concomitant]
     Active Substance: SODIUM CHLORIDE
     Indication: Product used for unknown indication
     Route: 065
  6. SODIUM CHLORIDE [Concomitant]
     Active Substance: SODIUM CHLORIDE
     Indication: Product used for unknown indication
     Route: 065
  7. CLARITHROMYCIN [Concomitant]
     Active Substance: CLARITHROMYCIN
     Indication: Product used for unknown indication
     Route: 065

REACTIONS (15)
  - Hospitalisation [Unknown]
  - Atrial fibrillation [Unknown]
  - Chronic obstructive pulmonary disease [Not Recovered/Not Resolved]
  - Folliculitis [Not Recovered/Not Resolved]
  - Hot flush [Unknown]
  - Dysgeusia [Recovered/Resolved]
  - Dysphonia [Unknown]
  - Aphonia [Unknown]
  - Dizziness [Unknown]
  - Cough [Unknown]
  - Dyspnoea [Unknown]
  - Haemoptysis [Unknown]
  - Device issue [Unknown]
  - Drug dose omission by device [Unknown]
  - Therapy interrupted [Unknown]

NARRATIVE: CASE EVENT DATE: 20240101
